FAERS Safety Report 24374638 (Version 3)
Quarter: 2025Q1

REPORT INFORMATION
  Report Type: Spontaneous
  Country: US (occurrence: US)
  Receive Date: 20240927
  Receipt Date: 20250222
  Transmission Date: 20250409
  Serious: No
  Sender: SANOFI AVENTIS
  Company Number: US-SA-2024SA276811

PATIENT
  Age: 54 Year
  Sex: Female
  Weight: 74.376 kg

DRUGS (13)
  1. DUPIXENT [Suspect]
     Active Substance: DUPILUMAB
     Indication: Rheumatoid arthritis
     Dosage: 300 MG, QOW
     Route: 058
     Dates: start: 202409
  2. DUPIXENT [Suspect]
     Active Substance: DUPILUMAB
     Indication: Neurodermatitis
  3. ENBREL [Concomitant]
     Active Substance: ETANERCEPT
  4. ACETAMINOPHEN\HYDROCODONE [Concomitant]
     Active Substance: ACETAMINOPHEN\HYDROCODONE
  5. BACLOFEN [Concomitant]
     Active Substance: BACLOFEN
  6. FLUOROURACIL [Concomitant]
     Active Substance: FLUOROURACIL
  7. DOXEPIN HYDROCHLORIDE [Concomitant]
     Active Substance: DOXEPIN HYDROCHLORIDE
  8. PROGESTERONE [Concomitant]
     Active Substance: PROGESTERONE
  9. AZATHIOPRINE [Concomitant]
     Active Substance: AZATHIOPRINE
  10. LORATADINE [Concomitant]
     Active Substance: LORATADINE
  11. ORENCIA [Concomitant]
     Active Substance: ABATACEPT
  12. WELLBUTRIN [Concomitant]
     Active Substance: BUPROPION HYDROCHLORIDE
  13. ESTRADIOL [Concomitant]
     Active Substance: ESTRADIOL

REACTIONS (6)
  - Illness [Unknown]
  - Ocular hyperaemia [Unknown]
  - Herpes zoster [Unknown]
  - Injection site pain [Unknown]
  - Pruritus [Unknown]
  - Drug ineffective for unapproved indication [Unknown]

NARRATIVE: CASE EVENT DATE: 20241201
